FAERS Safety Report 6728082-2 (Version None)
Quarter: 2010Q2

REPORT INFORMATION
  Report Type: 
  Country: None (occurrence: None)
  Receive Date: 20100517
  Receipt Date: 20100506
  Transmission Date: 20101027
  Serious: Yes (Hospitalization)
  Sender: FDA-Public Use
  Company Number: GXKR2010DE05110

PATIENT
  Age: 41 Year
  Sex: Female

DRUGS (1)
  1. PARACETAMOL (NGX) [Suspect]
     Route: 065

REACTIONS (4)
  - CHEST PAIN [None]
  - DYSPHAGIA [None]
  - OESOPHAGEAL PERFORATION [None]
  - OESOPHAGEAL ULCER HAEMORRHAGE [None]
